FAERS Safety Report 9220010 (Version 1)
Quarter: 2013Q2

REPORT INFORMATION
  Report Type: Report from Study
  Country: DE (occurrence: DE)
  Receive Date: 20130409
  Receipt Date: 20130409
  Transmission Date: 20140414
  Serious: Yes (Death)
  Sender: FDA-Public Use
  Company Number: DE-ROCHE-1209003

PATIENT
  Sex: 0

DRUGS (2)
  1. TENECTEPLASE [Suspect]
     Indication: ACUTE MYOCARDIAL INFARCTION
     Route: 065
  2. EPTIFIBATIDE [Suspect]
     Indication: ACUTE MYOCARDIAL INFARCTION
     Dosage: DOUBLE BOLUS180/180 UG/KG IN 10 MINUTE INTERVAL, INFUSION OF 2.0 UG/KG/MIN FOR 48 HOURS.
     Route: 040

REACTIONS (1)
  - Death [Fatal]
